FAERS Safety Report 10252171 (Version 1)
Quarter: 2014Q2

REPORT INFORMATION
  Report Type: Spontaneous
  Country: ES (occurrence: ES)
  Receive Date: 20140623
  Receipt Date: 20140623
  Transmission Date: 20141212
  Serious: Yes (Death)
  Sender: FDA-Public Use
  Company Number: ES-JNJFOC-20140608770

PATIENT
  Age: 58 Year
  Sex: Female
  Weight: 60 kg

DRUGS (8)
  1. SIMEPREVIR [Suspect]
     Indication: HEPATITIS C
     Route: 048
     Dates: start: 20140603, end: 20140605
  2. DACLATASVIR [Suspect]
     Indication: HEPATITIS C
     Route: 065
     Dates: start: 20140603, end: 20140605
  3. PHENYTOIN [Interacting]
     Indication: EPILEPSY
     Route: 065
  4. METHYLPREDNISOLONE [Concomitant]
     Route: 042
  5. OMEPRAZOLE [Concomitant]
     Route: 065
  6. PIPERACILLIN + TAZOBACTAM [Concomitant]
     Route: 042
  7. TRIMETHOPRIM AND SULFAMETHOXAZOLE [Concomitant]
     Dosage: 160/800 MG
  8. VITAMIN K [Concomitant]
     Indication: NUTRITIONAL SUPPLEMENTATION

REACTIONS (2)
  - Death [Fatal]
  - Drug interaction [Recovered/Resolved]
